FAERS Safety Report 4636699-4 (Version None)
Quarter: 2005Q2

REPORT INFORMATION
  Report Type: 
  Country: None (occurrence: None)
  Receive Date: 20050414
  Receipt Date: 20050401
  Transmission Date: 20051028
  Serious: Yes (Hospitalization)
  Sender: FDA-Public Use
  Company Number: 20050401VANCO0100

PATIENT
  Age: 85 Year
  Sex: Male

DRUGS (2)
  1. VANCOCIN ORAL (VANCOMYCIN HYDROCHLORIDE) (VANCOMYCIN HYDROCHLORIDE) [Suspect]
     Indication: CLOSTRIDIUM COLITIS
     Dosage: 2 GM, ORAL
     Route: 048
     Dates: start: 20050131, end: 20050204
  2. FOSFOMYCIN (FOSFOMYCIN) [Concomitant]

REACTIONS (3)
  - ALANINE AMINOTRANSFERASE INCREASED [None]
  - ASPARTATE AMINOTRANSFERASE INCREASED [None]
  - GAMMA-GLUTAMYLTRANSFERASE INCREASED [None]
